FAERS Safety Report 11702350 (Version 1)
Quarter: 2015Q4

REPORT INFORMATION
  Report Type: Spontaneous
  Country: HR (occurrence: HR)
  Receive Date: 20151105
  Receipt Date: 20151105
  Transmission Date: 20160304
  Serious: Yes (Other)
  Sender: FDA-Public Use
  Company Number: HR-TEVA-605212ISR

PATIENT
  Age: 65 Year
  Sex: Male

DRUGS (3)
  1. OXALIPLATIN PLIVA [Suspect]
     Active Substance: OXALIPLATIN
     Indication: HEPATIC CANCER
     Dosage: 170 MILLIGRAM DAILY; INFUSION AMPOULES, VIALS/BOTTLES
     Route: 041
     Dates: start: 20150831, end: 20150831
  2. CALCIUM FOLINATE [Concomitant]
     Active Substance: LEUCOVORIN CALCIUM
     Indication: HEPATIC CANCER METASTATIC
     Dosage: 400 MILLIGRAM DAILY; VIALS
     Route: 041
     Dates: start: 20150831, end: 20150831
  3. FLUOROURACIL PLIVA [Concomitant]
     Active Substance: FLUOROURACIL
     Indication: HEPATIC CANCER METASTATIC
     Dosage: 800 MILLIGRAM DAILY; VIALS
     Route: 041
     Dates: start: 20150831, end: 20150831

REACTIONS (4)
  - Discomfort [Recovering/Resolving]
  - Throat irritation [Recovering/Resolving]
  - Aptyalism [Recovering/Resolving]
  - Dry throat [Recovering/Resolving]

NARRATIVE: CASE EVENT DATE: 20150831
